FAERS Safety Report 16023514 (Version 1)
Quarter: 2019Q1

REPORT INFORMATION
  Report Type: Spontaneous
  Country: RU (occurrence: RU)
  Receive Date: 20190301
  Receipt Date: 20190301
  Transmission Date: 20190418
  Serious: Yes (Death, Other)
  Sender: FDA-Public Use
  Company Number: PHHY2019RU047342

PATIENT
  Age: 47 Year
  Sex: Female

DRUGS (2)
  1. CEFTRIAXONE. [Suspect]
     Active Substance: CEFTRIAXONE
     Indication: PNEUMONIA
     Dosage: 1 UNK, UNK
     Route: 030
  2. CLARITHROMYCIN. [Suspect]
     Active Substance: CLARITHROMYCIN
     Indication: PNEUMONIA
     Dosage: 500 MG, BID
     Route: 065

REACTIONS (10)
  - Crepitations [Unknown]
  - Idiopathic pulmonary fibrosis [Fatal]
  - Anaemia [Unknown]
  - Acute respiratory failure [Fatal]
  - Shock [Fatal]
  - Pneumonia [Unknown]
  - Interstitial lung disease [Fatal]
  - Drug ineffective [Fatal]
  - Staphylococcal sepsis [Unknown]
  - Cardiac failure [Fatal]
